FAERS Safety Report 5641234-8 (Version None)
Quarter: 2008Q1

REPORT INFORMATION
  Report Type: 
  Country: None (occurrence: None)
  Receive Date: 20080227
  Receipt Date: 20070402
  Transmission Date: 20080703
  Serious: No
  Sender: FDA-Public Use
  Company Number: A0645349A

PATIENT
  Age: 47 Year
  Sex: Female

DRUGS (1)
  1. NICORETTE (MINT) [Suspect]
     Dates: start: 20070329, end: 20070329

REACTIONS (7)
  - BURNING SENSATION [None]
  - GLOSSODYNIA [None]
  - LIP DISORDER [None]
  - NAUSEA [None]
  - ORAL DISCOMFORT [None]
  - PARAESTHESIA ORAL [None]
  - THROAT TIGHTNESS [None]
